FAERS Safety Report 4367821-5 (Version None)
Quarter: 2004Q2

REPORT INFORMATION
  Report Type: 
  Country: None (occurrence: None)
  Receive Date: 20040527
  Receipt Date: 20030519
  Transmission Date: 20050107
  Serious: Yes (Hospitalization)
  Sender: FDA-Public Use
  Company Number: ZONI001106

PATIENT
  Age: 6 Year
  Sex: Female

DRUGS (4)
  1. ZONEGRAN [Suspect]
     Indication: CONVULSION
     Dosage: 150 MG TWICE DAILY ORAL
     Route: 048
     Dates: start: 20030101
  2. DEPAKOTE [Concomitant]
  3. PHENOBARBITAL TAB [Concomitant]
  4. TOPAMAX [Concomitant]

REACTIONS (1)
  - CONVULSION [None]
